FAERS Safety Report 24443601 (Version 2)
Quarter: 2024Q4

REPORT INFORMATION
  Report Type: Report from Study
  Country: US (occurrence: US)
  Receive Date: 20241016
  Receipt Date: 20241017
  Transmission Date: 20250115
  Serious: No
  Sender: ROCHE
  Company Number: US-ROCHE-2219017

PATIENT
  Age: 45 Year
  Sex: Male

DRUGS (8)
  1. RITUXAN [Suspect]
     Active Substance: RITUXIMAB
     Indication: Antiphospholipid syndrome
     Route: 042
  2. RITUXAN [Suspect]
     Active Substance: RITUXIMAB
     Indication: Haemoptysis
     Dosage: DAY 1 AND 15 EVERY 6 MONTHS.
     Route: 042
  3. RITUXAN [Suspect]
     Active Substance: RITUXIMAB
     Indication: Respiratory tract haemorrhage
  4. RITUXAN [Suspect]
     Active Substance: RITUXIMAB
     Indication: Haemorrhagic disorder
  5. WARFARIN [Concomitant]
     Active Substance: WARFARIN
  6. FLUOXETINE HYDROCHLORIDE [Concomitant]
     Active Substance: FLUOXETINE HYDROCHLORIDE
  7. VITAMIN D3 [Concomitant]
     Active Substance: CHOLECALCIFEROL
  8. LYSINE [Concomitant]
     Active Substance: LYSINE

REACTIONS (2)
  - Off label use [Unknown]
  - No adverse event [Unknown]
